FAERS Safety Report 25625127 (Version 1)
Quarter: 2025Q3

REPORT INFORMATION
  Report Type: Spontaneous
  Country: US (occurrence: US)
  Receive Date: 20250731
  Receipt Date: 20250731
  Transmission Date: 20251021
  Serious: No
  Sender: PRINSTON PHARMACEUTICAL
  Company Number: US-PRINSTON PHARMACEUTICAL INC.-2024PRN00412

PATIENT
  Age: 8 Decade
  Sex: Female

DRUGS (3)
  1. CLONAZEPAM [Suspect]
     Active Substance: CLONAZEPAM
     Dosage: 1 MG, 2X/DAY
     Dates: start: 2024, end: 2024
  2. COVID-19 VACCINE NOS [Suspect]
     Active Substance: COVID-19 VACCINE
  3. INFLUENZA VIRUS VACCINE [Suspect]
     Active Substance: INFLUENZA VIRUS VACCINE

REACTIONS (8)
  - Cataract operation [Unknown]
  - Feeling abnormal [Unknown]
  - Gastrointestinal pain [Recovering/Resolving]
  - Radiculopathy [Unknown]
  - Decreased appetite [Unknown]
  - Constipation [Unknown]
  - Abdominal pain [Recovering/Resolving]
  - Product substitution issue [Recovered/Resolved]

NARRATIVE: CASE EVENT DATE: 20240101
